FAERS Safety Report 9257569 (Version 3)
Quarter: 2013Q3

REPORT INFORMATION
  Report Type: Spontaneous
  Country: FR (occurrence: FR)
  Receive Date: 20130426
  Receipt Date: 20130704
  Transmission Date: 20140515
  Serious: Yes (Other)
  Sender: FDA-Public Use
  Company Number: FR-JNJFOC-20130410413

PATIENT
  Sex: Male

DRUGS (3)
  1. XEPLION [Suspect]
     Indication: SCHIZOPHRENIA
     Route: 030
  2. XEPLION [Suspect]
     Indication: SCHIZOPHRENIA
     Route: 030
     Dates: start: 20130405
  3. EFFERALGAN [Concomitant]
     Indication: HEADACHE
     Route: 048
     Dates: start: 20130409

REACTIONS (4)
  - Renal failure acute [Unknown]
  - Sepsis syndrome [Unknown]
  - Hypothermia [Recovered/Resolved]
  - Dehydration [Unknown]
